FAERS Safety Report 12767068 (Version 7)
Quarter: 2017Q2

REPORT INFORMATION
  Report Type: Spontaneous
  Country: US (occurrence: US)
  Receive Date: 20160921
  Receipt Date: 20170608
  Transmission Date: 20170830
  Serious: No
  Sender: FDA-Public Use
  Company Number: US-ACTELION-A-US2016-142201

PATIENT
  Age: 65 Year
  Sex: Female
  Weight: 39.91 kg

DRUGS (5)
  1. UPTRAVI [Suspect]
     Active Substance: SELEXIPAG
     Indication: PULMONARY ARTERIAL HYPERTENSION
     Dosage: 600 MCG, BID
     Route: 048
     Dates: start: 20160811
  2. UPTRAVI [Suspect]
     Active Substance: SELEXIPAG
     Dosage: 1200 MCG, BID
     Route: 048
  3. UPTRAVI [Suspect]
     Active Substance: SELEXIPAG
     Dosage: 1000 MCG, BID
     Route: 048
  4. ADCIRCA [Concomitant]
     Active Substance: TADALAFIL
  5. UPTRAVI [Suspect]
     Active Substance: SELEXIPAG
     Dosage: 400 MCG, BID
     Route: 048

REACTIONS (8)
  - Gastric disorder [Unknown]
  - Headache [Unknown]
  - Thyroid function test abnormal [Unknown]
  - Dyspnoea [Unknown]
  - Coeliac disease [Unknown]
  - Gluten sensitivity [Unknown]
  - Anaemia [Unknown]
  - Diarrhoea [Unknown]
